FAERS Safety Report 7654472-X (Version None)
Quarter: 2011Q3

REPORT INFORMATION
  Report Type: 
  Country: None (occurrence: None)
  Receive Date: 20110803
  Receipt Date: 20110725
  Transmission Date: 20111222
  Serious: Yes (Hospitalization)
  Sender: FDA-Public Use
  Company Number: BR-ASTRAZENECA-2011SE44771

PATIENT
  Age: 74 Year
  Sex: Female
  Weight: 95 kg

DRUGS (9)
  1. ATACAND [Suspect]
     Indication: HYPERTENSION
     Route: 048
     Dates: start: 20090101, end: 20100101
  2. TAMOXIFEN CITRATE [Suspect]
     Indication: BREAST CANCER
     Dosage: ONCE DAILY
     Route: 048
     Dates: start: 20090101
  3. DONAREN [Concomitant]
     Indication: ANTIDEPRESSANT THERAPY
     Route: 048
     Dates: start: 20090101
  4. FUROSEMIDE [Concomitant]
     Indication: HYPERTENSION
     Route: 048
     Dates: start: 20090101
  5. LYRICA [Concomitant]
     Route: 048
     Dates: start: 20090101
  6. UNKNOWN DRUG [Concomitant]
     Route: 048
     Dates: start: 20090101, end: 20110101
  7. ATACAND [Suspect]
     Route: 048
     Dates: start: 20100101
  8. SERTRALINE HYDROCHLORIDE [Concomitant]
     Indication: ANTIDEPRESSANT THERAPY
     Route: 048
     Dates: start: 20090101
  9. CRESTOR [Suspect]
     Indication: HYPERCHOLESTEROLAEMIA
     Route: 048
     Dates: start: 20090101

REACTIONS (6)
  - BREAST CANCER [None]
  - BLOOD PRESSURE INADEQUATELY CONTROLLED [None]
  - HYPERCHOLESTEROLAEMIA [None]
  - DRUG INEFFECTIVE [None]
  - OFF LABEL USE [None]
  - BREAST OPERATION [None]
